FAERS Safety Report 6208181-4 (Version None)
Quarter: 2009Q2

REPORT INFORMATION
  Report Type: 
  Country: None (occurrence: None)
  Receive Date: 20090529
  Receipt Date: 20090520
  Transmission Date: 20091009
  Serious: Yes (Disabling, Other)
  Sender: FDA-Public Use
  Company Number: PHEH2009US05108

PATIENT
  Sex: Male

DRUGS (1)
  1. EXJADE [Suspect]
     Indication: SIDEROBLASTIC ANAEMIA
     Dosage: 1000 MG, QD
     Route: 048
     Dates: start: 20090319

REACTIONS (5)
  - ARTHRALGIA [None]
  - HAEMATEMESIS [None]
  - MYALGIA [None]
  - OCULAR ICTERUS [None]
  - WHEELCHAIR USER [None]
